FAERS Safety Report 22110624 (Version 1)
Quarter: 2023Q1

REPORT INFORMATION
  Report Type: Spontaneous
  Country: US (occurrence: None)
  Receive Date: 20230317
  Receipt Date: 20230317
  Transmission Date: 20230417
  Serious: Yes (Death)
  Sender: FDA-Public Use
  Company Number: None

PATIENT
  Age: 63 Year
  Sex: Male
  Weight: 63.5 kg

DRUGS (13)
  1. ABIRATERONE [Suspect]
     Active Substance: ABIRATERONE
     Indication: Prostate cancer
     Dosage: FREQUENCY : DAILY;?
     Route: 048
  2. DIPHENHYDRAMINE [Concomitant]
  3. DOCETAXEL [Concomitant]
     Active Substance: DOCETAXEL
  4. ELIGARD [Concomitant]
     Active Substance: LEUPROLIDE ACETATE
  5. FAMOTIDINE [Concomitant]
  6. JETVANA [Concomitant]
  7. LUPRON [Concomitant]
     Active Substance: LEUPROLIDE ACETATE
  8. MULTIVITAMIN [Concomitant]
  9. NAULASTA [Concomitant]
  10. ONDANSETRON [Concomitant]
  11. PREDNISONE [Concomitant]
     Active Substance: PREDNISONE
  12. XGEVA [Concomitant]
     Active Substance: DENOSUMAB
  13. ZOLEDRONIC ACID [Concomitant]
     Active Substance: ZOLEDRONIC ACID

REACTIONS (1)
  - Death [None]
